FAERS Safety Report 9494457 (Version 3)
Quarter: 2014Q1

REPORT INFORMATION
  Report Type: Spontaneous
  Country: FR (occurrence: FR)
  Receive Date: 20130903
  Receipt Date: 20140108
  Transmission Date: 20141002
  Serious: Yes (Hospitalization)
  Sender: FDA-Public Use
  Company Number: FR-ROCHE-1268945

PATIENT
  Age: 68 Year
  Sex: Male

DRUGS (3)
  1. RIVOTRIL [Suspect]
     Indication: PRODUCT USED FOR UNKNOWN INDICATION
     Dosage: 1 MG/1 ML
     Route: 042
     Dates: start: 20130803, end: 20130806
  2. URBANYL [Suspect]
     Indication: PRODUCT USED FOR UNKNOWN INDICATION
     Route: 048
     Dates: start: 20130727, end: 20130802
  3. LAMICTAL [Concomitant]
     Dosage: 25 MG
     Route: 048
     Dates: start: 20130727

REACTIONS (1)
  - Depressed level of consciousness [Recovered/Resolved]
